FAERS Safety Report 21668559 (Version 1)
Quarter: 2022Q4

REPORT INFORMATION
  Report Type: Spontaneous
  Country: US (occurrence: US)
  Receive Date: 20221201
  Receipt Date: 20221201
  Transmission Date: 20230112
  Serious: No
  Sender: FDA-Public Use
  Company Number: US-SA-SAC20221129000139

PATIENT
  Age: 70 Year
  Sex: Male
  Weight: 92.9 kg

DRUGS (4)
  1. DUPIXENT [Suspect]
     Active Substance: DUPILUMAB
     Indication: Dermatitis allergic
     Dosage: 600 MG, 1X
     Route: 058
     Dates: start: 20221116, end: 20221116
  2. ASPIRIN [Concomitant]
     Active Substance: ASPIRIN
  3. VITAMIN C [Concomitant]
     Active Substance: ASCORBIC ACID
  4. .ALPHA.-TOCOPHEROL [Concomitant]
     Active Substance: .ALPHA.-TOCOPHEROL

REACTIONS (3)
  - Skin lesion [Recovering/Resolving]
  - Skin exfoliation [Not Recovered/Not Resolved]
  - Pruritus [Recovering/Resolving]

NARRATIVE: CASE EVENT DATE: 20221119
